FAERS Safety Report 5244116-9 (Version None)
Quarter: 2007Q1

REPORT INFORMATION
  Report Type: 
  Country: None (occurrence: None)
  Receive Date: 20070222
  Receipt Date: 20070214
  Transmission Date: 20070707
  Serious: Yes (Hospitalization)
  Sender: FDA-Public Use
  Company Number: FR-ROCHE-472933

PATIENT
  Age: 62 Year
  Sex: Female
  Weight: 91 kg

DRUGS (3)
  1. XELODA [Suspect]
     Route: 048
     Dates: start: 20061117, end: 20061120
  2. NAVELBINE [Concomitant]
     Indication: BREAST CANCER
     Dosage: NAVELBINE 60 AT 2 DOSES PER DAY.
     Route: 048
  3. MODURETIC 5-50 [Concomitant]

REACTIONS (1)
  - CONGESTIVE CARDIOMYOPATHY [None]
